FAERS Safety Report 8804494 (Version 1)
Quarter: 2012Q4

REPORT INFORMATION
  Report Type: 
  Country: US (occurrence: US)
  Receive Date: 20120924
  Receipt Date: 20120924
  Transmission Date: 20130627
  Serious: Yes (Other)
  Sender: FDA-Public Use
  Company Number: US-ROCHE-1104453

PATIENT
  Sex: Female

DRUGS (6)
  1. AVASTIN [Suspect]
     Indication: BREAST CANCER FEMALE
     Route: 065
     Dates: start: 20051122
  2. AVASTIN [Suspect]
     Route: 065
     Dates: start: 20060420
  3. NOLVADEX [Concomitant]
  4. AREDIA [Concomitant]
  5. TAXOTERE [Concomitant]
     Dosage: every week
     Route: 065
  6. CARBOPLATIN [Concomitant]
     Dosage: every week
     Route: 065

REACTIONS (1)
  - Disease progression [Unknown]
